FAERS Safety Report 5814439-0 (Version None)
Quarter: 2008Q3

REPORT INFORMATION
  Report Type: 
  Country: None (occurrence: None)
  Receive Date: 20080718
  Receipt Date: 20080714
  Transmission Date: 20090109
  Serious: Yes (Other)
  Sender: FDA-Public Use
  Company Number: AT-JNJFOC-20080701912

PATIENT
  Age: 43 Year
  Sex: Female

DRUGS (3)
  1. INVEGA [Suspect]
     Indication: PSYCHOTIC DISORDER
     Route: 048
  2. ABILIFY [Concomitant]
     Route: 065
  3. MIRTABENE [Concomitant]
     Route: 065

REACTIONS (3)
  - BLOOD CHLORIDE DECREASED [None]
  - HYPONATRAEMIA [None]
  - POLYDIPSIA [None]
